FAERS Safety Report 10146177 (Version 1)
Quarter: 2014Q2

REPORT INFORMATION
  Report Type: Spontaneous
  Country: GB (occurrence: GB)
  Receive Date: 20140501
  Receipt Date: 20140501
  Transmission Date: 20141212
  Serious: Yes (Hospitalization, Other)
  Sender: FDA-Public Use
  Company Number: GB-PFIZER INC-2014114729

PATIENT
  Age: 55 Year
  Sex: Female

DRUGS (17)
  1. DOXORUBICIN HCL [Suspect]
     Indication: DIFFUSE LARGE B-CELL LYMPHOMA
     Dosage: DOSE AND FREQUENCY AS PER PROTOCOL: 50MG/M2 EVERY 21 DAYS
     Route: 042
     Dates: start: 20100225
  2. CYCLOPHOSPHAMIDE [Suspect]
     Indication: DIFFUSE LARGE B-CELL LYMPHOMA
     Dosage: DOSE AND FREQUENCY AS PER PROTOCOL: 750 MG/M2 EVERY 21 DAYS
     Route: 042
     Dates: start: 20100225
  3. AVASTIN [Suspect]
     Indication: DIFFUSE LARGE B-CELL LYMPHOMA
     Dosage: DOSE AND FREQUENCY AS PER PROTOCOL: 15 MG/KG EVERY 21 DAYS
     Route: 042
  4. AVASTIN [Suspect]
     Dosage: DOSE AND FREQUENCY AS PER PROTOCOL: 15 MG/KG EVERY 21 DAYS
     Route: 042
     Dates: start: 20100225, end: 20100415
  5. MABTHERA [Suspect]
     Indication: DIFFUSE LARGE B-CELL LYMPHOMA
     Dosage: DOSE AND FREQUENCY AS PER PROTOCOL: 375 MG/M2 EVERY 21 DAYS
     Route: 042
     Dates: start: 20100225
  6. PREDNISOLONE [Suspect]
     Indication: DIFFUSE LARGE B-CELL LYMPHOMA
     Dosage: DOSE AND FREQUENCY AS PER PROTOCOL: 40 MG/M2 DAYS 1-5 EVERY 21 DAYS
     Route: 048
     Dates: start: 20100225
  7. VINCRISTINE [Suspect]
     Indication: DIFFUSE LARGE B-CELL LYMPHOMA
     Dosage: DOSE AND FREQUENCY AS PER PROTOCOL: 1.4 MG/M2 EVERY 21 DAYS
     Route: 042
     Dates: start: 20100225
  8. ALLOPURINOL [Concomitant]
  9. CO-CODAMOL [Concomitant]
     Dosage: DOSE: 30/500 QDS
     Route: 065
  10. CO-TRIMOXAZOLE [Concomitant]
     Route: 065
  11. GABAPENTIN [Concomitant]
     Route: 065
  12. IBUPROFEN [Concomitant]
     Route: 065
  13. LANSOPRAZOLE [Concomitant]
  14. CARBOXYMETHYLCELLULOSE SODIUM [Concomitant]
     Dosage: DOSE: 10 MG STAT.
  15. CALCIUM ALGINATE [Concomitant]
     Dosage: DOSE: 10 MG STAT.
  16. RAMIPRIL [Concomitant]
  17. HYDROCODONE [Concomitant]

REACTIONS (3)
  - Hypertension [Recovered/Resolved with Sequelae]
  - Vomiting [Recovered/Resolved with Sequelae]
  - Left ventricular dysfunction [Recovered/Resolved]
